FAERS Safety Report 5810532-7 (Version None)
Quarter: 2008Q3

REPORT INFORMATION
  Report Type: 
  Country: None (occurrence: None)
  Receive Date: 20080715
  Receipt Date: 20080711
  Transmission Date: 20090109
  Serious: Yes (Other)
  Sender: FDA-Public Use
  Company Number: US-ASTRAZENECA-2008UW13954

PATIENT
  Sex: Female

DRUGS (2)
  1. ELAVIL [Suspect]
     Route: 048
  2. TRAZODONE HCL [Concomitant]

REACTIONS (2)
  - INSOMNIA [None]
  - NERVE INJURY [None]
